FAERS Safety Report 8611026-6 (Version None)
Quarter: 2012Q3

REPORT INFORMATION
  Report Type: 
  Country: None (occurrence: None)
  Receive Date: 20120822
  Receipt Date: 20120817
  Transmission Date: 20120928
  Serious: Yes (Death)
  Sender: FDA-Public Use
  Company Number: CO-PFIZER INC-2012202130

PATIENT
  Sex: Female

DRUGS (1)
  1. TORISEL [Suspect]
     Indication: NEOPLASM MALIGNANT
     Route: 065

REACTIONS (9)
  - MALNUTRITION [None]
  - NEOPLASM MALIGNANT [None]
  - BLOOD DISORDER [None]
  - CACHEXIA [None]
  - NEOPLASM [None]
  - ANAEMIA [None]
  - LUNG DISORDER [None]
  - DISEASE PROGRESSION [None]
  - DECREASED APPETITE [None]
